FAERS Safety Report 24567873 (Version 2)
Quarter: 2025Q3

REPORT INFORMATION
  Report Type: Spontaneous
  Country: RU (occurrence: RU)
  Receive Date: 20241031
  Receipt Date: 20250809
  Transmission Date: 20251020
  Serious: Yes (Other)
  Sender: ALEXION PHARMACEUTICALS
  Company Number: RU-ASTRAZENECA-202410RUS019368RU

PATIENT
  Age: 68 Year
  Sex: Male
  Weight: 110 kg

DRUGS (3)
  1. DAPAGLIFLOZIN [Suspect]
     Active Substance: DAPAGLIFLOZIN
  2. Antidiuretic hormone [Concomitant]
  3. Beta B [Concomitant]
     Indication: Diabetes mellitus

REACTIONS (4)
  - Dyspnoea [Recovered/Resolved]
  - Oedema [Recovering/Resolving]
  - Pruritus genital [Recovered/Resolved]
  - Burning sensation [Recovered/Resolved]
